FAERS Safety Report 9526856 (Version 2)
Quarter: 2013Q3

REPORT INFORMATION
  Report Type: Report from Study
  Country: AU (occurrence: AU)
  Receive Date: 20130916
  Receipt Date: 20130925
  Transmission Date: 20140515
  Serious: Yes (Death)
  Sender: FDA-Public Use
  Company Number: PHHY2013AU102360

PATIENT
  Sex: Female

DRUGS (1)
  1. ACLASTA [Suspect]
     Dosage: 5 MG, UNK
     Route: 042
     Dates: start: 20121023

REACTIONS (4)
  - Amyloidosis [Fatal]
  - Plasma cell myeloma [Fatal]
  - Hepatic failure [Fatal]
  - Renal failure [Fatal]
